FAERS Safety Report 5752132-3 (Version None)
Quarter: 2008Q2

REPORT INFORMATION
  Report Type: 
  Country: None (occurrence: None)
  Receive Date: 20080528
  Receipt Date: 20080519
  Transmission Date: 20081010
  Serious: Yes (Hospitalization)
  Sender: FDA-Public Use
  Company Number: APP200800420

PATIENT
  Age: 75 Year
  Sex: Female

DRUGS (2)
  1. HEPARIN SODIUM INJECTION [Suspect]
     Indication: DRUG USE FOR UNKNOWN INDICATION
  2. CLOZAPINE [Suspect]
     Indication: HALLUCINATION
     Dosage: 25 MG, ORAL
     Route: 048
     Dates: start: 20051001

REACTIONS (1)
  - HAEMORRHAGE [None]
